FAERS Safety Report 5205846-8 (Version None)
Quarter: 2007Q1

REPORT INFORMATION
  Report Type: 
  Country: None (occurrence: None)
  Receive Date: 20070111
  Receipt Date: 20070105
  Transmission Date: 20070707
  Serious: Yes (Hospitalization)
  Sender: FDA-Public Use
  Company Number: FI-BRISTOL-MYERS SQUIBB COMPANY-13635016

PATIENT
  Age: 59 Year
  Sex: Male

DRUGS (12)
  1. TREXAN (ORION) [Suspect]
     Indication: RHEUMATOID ARTHRITIS
     Dates: end: 20060701
  2. METOJECT [Suspect]
     Indication: RHEUMATOID ARTHRITIS
     Dates: end: 20060701
  3. OXIKLORIN [Suspect]
     Indication: RHEUMATOID ARTHRITIS
     Dates: end: 20060701
  4. HUMIRA [Suspect]
     Indication: RHEUMATOID ARTHRITIS
     Dates: end: 20060701
  5. ENBREL [Suspect]
     Dates: end: 20060701
  6. SULFASALAZINE [Suspect]
     Indication: RHEUMATOID ARTHRITIS
  7. MOBIC [Concomitant]
  8. CARDACE [Concomitant]
  9. SPESICOR [Concomitant]
  10. ZOCOR [Concomitant]
  11. KALCIPOS-D [Concomitant]
  12. IDEOS [Concomitant]

REACTIONS (2)
  - PHOTODERMATOSIS [None]
  - SEBORRHOEIC DERMATITIS [None]
